FAERS Safety Report 9562488 (Version 1)
Quarter: 2013Q3

REPORT INFORMATION
  Report Type: Spontaneous
  Country: NL (occurrence: NL)
  Receive Date: 20130927
  Receipt Date: 20130927
  Transmission Date: 20140515
  Serious: Yes (Other)
  Sender: FDA-Public Use
  Company Number: NL-PFIZER INC-2013274418

PATIENT
  Age: 63 Year
  Sex: Female
  Weight: 120 kg

DRUGS (9)
  1. OLANZAPINE [Suspect]
     Indication: MAJOR DEPRESSION
     Dosage: 10 MG, 1X/DAY
     Dates: start: 20130904, end: 20130905
  2. LORAZEPAM [Suspect]
     Indication: ANXIETY
     Dosage: 2.5 MG, 3X/DAY
     Dates: start: 201309
  3. VENLAFAXINE HCL [Suspect]
     Indication: DEPRESSION
     Dosage: 75 MG, 1X/DAY
     Dates: start: 201305
  4. NORTRILEN [Suspect]
     Indication: DEPRESSION
     Dosage: 150 MG, 1X/DAY
     Dates: start: 201305
  5. INSULIN ASPART [Concomitant]
     Dosage: 1 DF, ACCORDING TO SCHEME
     Dates: start: 20130904
  6. HYDROCHLOROTHIAZIDE/IRBESARTAN HYDROCHLORIDE [Concomitant]
     Dosage: 1 DF, 1X/DAY
     Dates: start: 20130904
  7. OXAZEPAM [Concomitant]
     Dosage: 1 DF, AS NEEDED 1 OR 2 TIMES PER DAY
     Dates: start: 20130904
  8. MIRTAZAPINE [Concomitant]
     Dosage: 15 MG, 1X/DAY
     Dates: start: 20130905
  9. RISPERIDONE [Concomitant]
     Dosage: 1 MG, 3X/DAY
     Dates: start: 20130905

REACTIONS (4)
  - Orthostatic hypotension [Recovered/Resolved]
  - Syncope [Recovered/Resolved]
  - Pulse absent [Recovered/Resolved]
  - Somnolence [Recovered/Resolved]
